FAERS Safety Report 8164066-8 (Version None)
Quarter: 2012Q1

REPORT INFORMATION
  Report Type: 
  Country: None (occurrence: None)
  Receive Date: 20120224
  Receipt Date: 20120222
  Transmission Date: 20120608
  Serious: Yes (Life-Threatening, Hospitalization)
  Sender: FDA-Public Use
  Company Number: CA-B.I. PHARMACEUTICALS,INC./RIDGEFIELD-2012-CN-00400CN

PATIENT
  Age: 80 Year
  Sex: Male

DRUGS (9)
  1. VENTOLIN [Concomitant]
     Route: 065
  2. LISINOPRIL [Concomitant]
     Route: 048
  3. BISOPROLOL FUMARATE [Concomitant]
     Route: 048
  4. DIGOXIN [Concomitant]
     Route: 048
  5. FLOVENT [Concomitant]
     Route: 065
  6. PRADAXA [Suspect]
     Dosage: 220 MG
     Route: 048
  7. ALDACTONE [Concomitant]
     Route: 048
  8. LASIX [Concomitant]
     Route: 048
  9. PRAVASTATIN SODIUM [Concomitant]
     Route: 048

REACTIONS (3)
  - COAGULOPATHY [None]
  - GASTROINTESTINAL HAEMORRHAGE [None]
  - RENAL FAILURE [None]
